FAERS Safety Report 4570718-9 (Version None)
Quarter: 2005Q1

REPORT INFORMATION
  Report Type: 
  Country: None (occurrence: None)
  Receive Date: 20050202
  Receipt Date: 20050124
  Transmission Date: 20050727
  Serious: Yes (Other)
  Sender: FDA-Public Use
  Company Number: 26051

PATIENT
  Age: 32 Year
  Sex: Female

DRUGS (1)
  1. ALDARA                  (IMIQIMOD) [Suspect]
     Indication: CONDYLOMA ACUMINATUM
     Dosage: TOPICAL
     Route: 061
     Dates: start: 20041124, end: 20041127

REACTIONS (4)
  - APPLICATION SITE PAIN [None]
  - ARTHRALGIA [None]
  - GENITAL PAIN FEMALE [None]
  - MIGRAINE [None]
